FAERS Safety Report 7438944-9 (Version None)
Quarter: 2011Q2

REPORT INFORMATION
  Report Type: 
  Country: None (occurrence: None)
  Receive Date: 20110426
  Receipt Date: 20110411
  Transmission Date: 20111010
  Serious: Yes (Other)
  Sender: FDA-Public Use
  Company Number: US-BAYER-2011-032027

PATIENT
  Sex: Female

DRUGS (1)
  1. AVELOX [Suspect]
     Indication: VIRAL INFECTION
     Dosage: 400 MG, UNK
     Route: 048

REACTIONS (2)
  - DIARRHOEA [None]
  - IRRITABLE BOWEL SYNDROME [None]
